FAERS Safety Report 4727626-X (Version None)
Quarter: 2005Q3

REPORT INFORMATION
  Report Type: 
  Country: None (occurrence: None)
  Receive Date: 20050727
  Receipt Date: 20050727
  Transmission Date: 20060218
  Serious: Yes (Other)
  Sender: FDA-Public Use
  Company Number: None

PATIENT
  Age: 8 Month
  Sex: Male
  Weight: 74.8435 kg

DRUGS (2)
  1. ZOLOFT [Suspect]
     Indication: DEPRESSION
     Dosage: TWICE IN A.M.
     Dates: start: 20050116, end: 20050726
  2. ZOLOFT [Suspect]
     Indication: EMOTIONAL DISORDER OF CHILDHOOD
     Dosage: TWICE IN A.M.
     Dates: start: 20050116, end: 20050726

REACTIONS (5)
  - DEPRESSION [None]
  - NERVOUS SYSTEM DISORDER [None]
  - PERSONALITY CHANGE [None]
  - SLEEP DISORDER [None]
  - SUICIDAL IDEATION [None]
